FAERS Safety Report 12200082 (Version 1)
Quarter: 2016Q1

REPORT INFORMATION
  Report Type: Spontaneous
  Country: FR (occurrence: FR)
  Receive Date: 20160322
  Receipt Date: 20160322
  Transmission Date: 20160526
  Serious: Yes (Other)
  Sender: FDA-Public Use
  Company Number: FR-SA-2016SA055988

PATIENT
  Age: 40 Year
  Sex: Female

DRUGS (1)
  1. STILNOX [Suspect]
     Active Substance: ZOLPIDEM TARTRATE
     Dosage: DOSE AND DAILY DOSE: 2 OR 3 TABLETS DAILY (IN THE MORNING)?STARTED 3 TO 4 YEARS AGO
     Route: 048

REACTIONS (4)
  - Abnormal behaviour [Unknown]
  - Intentional overdose [Unknown]
  - Kleptomania [Unknown]
  - Somnolence [Unknown]
